FAERS Safety Report 8824594 (Version 1)
Quarter: 2012Q4

REPORT INFORMATION
  Report Type: 
  Country: BR (occurrence: BR)
  Receive Date: 20121004
  Receipt Date: 20121004
  Transmission Date: 20130627
  Serious: Yes (Other)
  Sender: FDA-Public Use
  Company Number: BR-SANOFI-AVENTIS-2012SA070922

PATIENT
  Age: 86 Year
  Sex: Female
  Weight: 60 kg

DRUGS (3)
  1. ALLEGRA D [Suspect]
     Indication: FLU
     Route: 065
     Dates: start: 20120924
  2. METFORMIN [Concomitant]
  3. DIAMICRON [Concomitant]

REACTIONS (1)
  - Anuria [Recovered/Resolved]
